FAERS Safety Report 23376595 (Version 1)
Quarter: 2024Q1

REPORT INFORMATION
  Report Type: Spontaneous
  Country: US (occurrence: US)
  Receive Date: 20240108
  Receipt Date: 20240108
  Transmission Date: 20240409
  Serious: Yes (Other)
  Sender: FDA-Public Use
  Company Number: US-BRISTOL-MYERS SQUIBB COMPANY-2024-000174

PATIENT
  Age: 77 Year
  Sex: Male
  Weight: 83.91 kg

DRUGS (23)
  1. POMALYST [Suspect]
     Active Substance: POMALIDOMIDE
     Indication: Plasma cell myeloma
     Dosage: 21 CT
     Route: 048
     Dates: start: 20230209
  2. POMALYST [Suspect]
     Active Substance: POMALIDOMIDE
     Dosage: FREQUENCY: 1 DAILY X 21 DAYS
     Route: 048
     Dates: start: 20230223
  3. POMALYST [Suspect]
     Active Substance: POMALIDOMIDE
     Dosage: 21 CT
     Dates: start: 20230508
  4. POMALYST [Suspect]
     Active Substance: POMALIDOMIDE
     Dosage: 21 CT
     Dates: start: 20230612
  5. POMALYST [Suspect]
     Active Substance: POMALIDOMIDE
     Dosage: 21 CT
     Dates: start: 20230905
  6. POMALYST [Suspect]
     Active Substance: POMALIDOMIDE
     Dosage: 21 CT
     Dates: start: 20231002
  7. POMALYST [Suspect]
     Active Substance: POMALIDOMIDE
     Dosage: 21 CT
     Dates: start: 20231126
  8. POMALYST [Suspect]
     Active Substance: POMALIDOMIDE
     Dosage: 21 CT
     Dates: start: 20231128
  9. POMALYST [Suspect]
     Active Substance: POMALIDOMIDE
     Dosage: 21 CT
     Dates: start: 20231219
  10. POMALYST [Suspect]
     Active Substance: POMALIDOMIDE
     Dosage: 21 CT
     Dates: start: 20231222
  11. POMALYST [Suspect]
     Active Substance: POMALIDOMIDE
     Dosage: 21 CT
     Dates: start: 20231226
  12. POMALYST [Suspect]
     Active Substance: POMALIDOMIDE
     Dosage: 21 CT
     Dates: start: 20230403
  13. MUCINEX [Concomitant]
     Active Substance: GUAIFENESIN
     Indication: Product used for unknown indication
     Dosage: TB12
  14. ROSUVASTATIN CALCIUM [Concomitant]
     Active Substance: ROSUVASTATIN CALCIUM
     Indication: Product used for unknown indication
     Dosage: TB12
  15. FISH OIL\OMEGA-3 FATTY ACIDS [Concomitant]
     Active Substance: FISH OIL\OMEGA-3 FATTY ACIDS
     Indication: Product used for unknown indication
     Dosage: TB12
  16. COENZYME Q10 [Concomitant]
     Active Substance: DIETARY SUPPLEMENT\UBIDECARENONE
     Indication: Product used for unknown indication
     Dosage: HM COQ 10
  17. FOLIC ACID [Concomitant]
     Active Substance: FOLIC ACID
     Indication: Product used for unknown indication
  18. ALPHA LIPOIC ACID [Concomitant]
     Active Substance: .ALPHA.-LIPOIC ACID
     Indication: Product used for unknown indication
  19. VITAMIN C [Concomitant]
     Active Substance: ASCORBIC ACID
     Indication: Product used for unknown indication
     Dosage: RA VITAMIN C
  20. ERTAPENEM SODIUM [Concomitant]
     Active Substance: ERTAPENEM SODIUM
     Indication: Product used for unknown indication
     Dosage: SOLR
  21. ACYCLOVIR [Concomitant]
     Active Substance: ACYCLOVIR
     Indication: Product used for unknown indication
  22. REPAGLINIDE [Concomitant]
     Active Substance: REPAGLINIDE
     Indication: Product used for unknown indication
  23. HYDROXYZINE HYDROCHLORIDE [Concomitant]
     Active Substance: HYDROXYZINE HYDROCHLORIDE
     Indication: Product used for unknown indication

REACTIONS (2)
  - Osteonecrosis of jaw [Unknown]
  - Thyroid cancer [Unknown]
